FAERS Safety Report 12085389 (Version 2)
Quarter: 2017Q1

REPORT INFORMATION
  Report Type: Report from Study
  Country: US (occurrence: US)
  Receive Date: 20160217
  Receipt Date: 20170324
  Transmission Date: 20170428
  Serious: No
  Sender: FDA-Public Use
  Company Number: PHHY2016US019538

PATIENT
  Age: 47 Year
  Sex: Female

DRUGS (1)
  1. GILENYA [Suspect]
     Active Substance: FINGOLIMOD HYDROCHLORIDE
     Indication: MULTIPLE SCLEROSIS
     Dosage: UNK UNK, QD
     Route: 048

REACTIONS (6)
  - Swelling [Recovered/Resolved]
  - Papule [Recovered/Resolved]
  - Pruritus [Unknown]
  - Pruritus [Recovered/Resolved]
  - Xerosis [Unknown]
  - Urticaria [Unknown]

NARRATIVE: CASE EVENT DATE: 20150729
